FAERS Safety Report 4730197-5 (Version None)
Quarter: 2005Q3

REPORT INFORMATION
  Report Type: 
  Country: None (occurrence: None)
  Receive Date: 20050801
  Receipt Date: 20050726
  Transmission Date: 20060218
  Serious: Yes (Other)
  Sender: FDA-Public Use
  Company Number: NL-GLAXOSMITHKLINE-B0388664A

PATIENT
  Age: 39 Year
  Sex: Female
  Weight: 72 kg

DRUGS (6)
  1. LAMOTRIGINE [Suspect]
     Indication: EPILEPSY
     Route: 065
  2. PHENOBARBITAL [Suspect]
     Indication: EPILEPSY
  3. ETHOSUXIMIDE [Suspect]
     Indication: EPILEPSY
  4. VALPROATE SODIUM [Suspect]
     Indication: EPILEPSY
  5. CARBAMAZEPINE [Suspect]
     Indication: EPILEPSY
  6. OXCARBAZEPINE [Suspect]
     Indication: EPILEPSY

REACTIONS (3)
  - OSTEOPENIA [None]
  - PELVIC FRACTURE [None]
  - SPINAL FRACTURE [None]
